FAERS Safety Report 9007046 (Version 1)
Quarter: 2013Q1

REPORT INFORMATION
  Report Type: Spontaneous
  Country: AU (occurrence: AU)
  Receive Date: 20130110
  Receipt Date: 20130110
  Transmission Date: 20140127
  Serious: Yes (Other)
  Sender: FDA-Public Use
  Company Number: AU-ASTRAZENECA-2013SE00798

PATIENT
  Age: 67 Year
  Sex: Male

DRUGS (9)
  1. NEXIUM [Suspect]
     Indication: OESOPHAGEAL DISORDER
     Route: 048
  2. MS CONTIN [Suspect]
     Indication: PAIN
     Route: 048
  3. CISPLATIN [Suspect]
     Dosage: 80MG/SQUARE METRE (133MG) DI
     Route: 065
  4. MAXOLON [Suspect]
     Indication: NAUSEA
     Route: 048
  5. MAXOLON [Suspect]
     Indication: VOMITING
     Route: 048
  6. TEMTABS [Suspect]
     Indication: SLEEP DISORDER
     Route: 065
  7. VINORELBINE DITARTRATE [Suspect]
     Dosage: 16 MG/SQUARE METRE (24MG) DI AND D8
     Route: 065
  8. ASPIRIN [Concomitant]
     Indication: CEREBROVASCULAR DISORDER
  9. PRAVACHOL [Concomitant]
     Indication: METABOLIC DISORDER

REACTIONS (1)
  - Renal failure acute [Not Recovered/Not Resolved]
